FAERS Safety Report 4355613-2 (Version None)
Quarter: 2004Q2

REPORT INFORMATION
  Report Type: 
  Country: None (occurrence: None)
  Receive Date: 20040505
  Receipt Date: 20040428
  Transmission Date: 20050107
  Serious: Yes (Hospitalization)
  Sender: FDA-Public Use
  Company Number: 200403666

PATIENT
  Age: 16 Year
  Sex: Female

DRUGS (4)
  1. EXTRA STRENGTH TYLENOL CAPLETS (ACETAMINOPHEN) [Suspect]
     Indication: SUICIDE ATTEMPT
     Dosage: 3000 MG PO ONCE
     Route: 048
     Dates: start: 20040428, end: 20040428
  2. OXY CLEAN [Suspect]
     Indication: SUICIDE ATTEMPT
     Dates: start: 20040428, end: 20040428
  3. CARAFATE [Concomitant]
  4. PROTONIX [Concomitant]

REACTIONS (4)
  - INTENTIONAL MISUSE [None]
  - SOMNOLENCE [None]
  - SUICIDE ATTEMPT [None]
  - VOMITING [None]
